FAERS Safety Report 23435455 (Version 1)
Quarter: 2024Q1

REPORT INFORMATION
  Report Type: Spontaneous
  Country: FR (occurrence: FR)
  Receive Date: 20240124
  Receipt Date: 20240124
  Transmission Date: 20240409
  Serious: Yes (Hospitalization, Other)
  Sender: FDA-Public Use
  Company Number: FR-IHL-000467

PATIENT
  Age: 19 Year
  Sex: Female
  Weight: 52 kg

DRUGS (1)
  1. VENLAFAXINE HYDROCHLORIDE [Suspect]
     Active Substance: VENLAFAXINE HYDROCHLORIDE
     Indication: Product used for unknown indication
     Route: 065

REACTIONS (13)
  - Cardio-respiratory arrest [Unknown]
  - Toxicity to various agents [Unknown]
  - Ventricular dysfunction [Unknown]
  - Seizure [Unknown]
  - Somnolence [Unknown]
  - Sinus tachycardia [Unknown]
  - Hypotension [Unknown]
  - Ventricular tachycardia [Unknown]
  - Coma [Unknown]
  - Mydriasis [Unknown]
  - Stress cardiomyopathy [Unknown]
  - Intentional overdose [Unknown]
  - Suicide attempt [Unknown]
